FAERS Safety Report 8424324-6 (Version None)
Quarter: 2012Q2

REPORT INFORMATION
  Report Type: 
  Country: None (occurrence: None)
  Receive Date: 20120608
  Receipt Date: 20120125
  Transmission Date: 20120825
  Serious: No
  Sender: FDA-Public Use
  Company Number: US-ASTRAZENECA-2012SE02455

PATIENT
  Age: 52 Year
  Sex: Female
  Weight: 86.2 kg

DRUGS (25)
  1. METFORMIN HYDROCHLORIDE [Concomitant]
  2. KETOROLAC TROMETHAMINE [Concomitant]
  3. CELEXA [Concomitant]
  4. LEVOTHYROXINE SODIUM [Concomitant]
  5. LANTUS [Concomitant]
  6. PULMICORT [Suspect]
     Route: 055
  7. VIT C [Concomitant]
  8. CARAFATE [Concomitant]
  9. GLUCODIN [Concomitant]
  10. BUTORTHAOL [Concomitant]
  11. LISINOPRIL [Concomitant]
  12. DETROL [Concomitant]
  13. CETIRIZINE HCL [Concomitant]
  14. PULMICORT [Suspect]
     Indication: DYSPNOEA
     Dosage: FOUR TIMES A DAY
     Route: 055
     Dates: start: 20060101
  15. OMEPRAZOLE [Concomitant]
  16. VERAPAMIL [Concomitant]
  17. MUCUS RELEASE [Concomitant]
  18. PROAIR HFA [Concomitant]
  19. TOPAMAX [Concomitant]
  20. CYPROHEPTADINE HCL [Concomitant]
  21. PRION [Concomitant]
  22. IRON [Concomitant]
  23. HYDROXYZ [Concomitant]
  24. DIHYDROERGOTAMINE MESYLATE [Concomitant]
  25. VENLASAVEN [Concomitant]

REACTIONS (7)
  - HYPOXIA [None]
  - INFLUENZA [None]
  - VOCAL CORD DISORDER [None]
  - NASOPHARYNGITIS [None]
  - OFF LABEL USE [None]
  - DYSPNOEA [None]
  - DRUG DOSE OMISSION [None]
